FAERS Safety Report 5699898-9 (Version None)
Quarter: 2008Q2

REPORT INFORMATION
  Report Type: 
  Country: None (occurrence: None)
  Receive Date: 20080410
  Receipt Date: 20080403
  Transmission Date: 20081010
  Serious: Yes (Hospitalization)
  Sender: FDA-Public Use
  Company Number: FR-MERCK-0804FRA00013

PATIENT
  Age: 95 Year
  Sex: Female

DRUGS (4)
  1. NOROXIN [Suspect]
     Indication: ESCHERICHIA URINARY TRACT INFECTION
     Route: 048
     Dates: start: 20070810, end: 20070810
  2. DIGOXIN [Concomitant]
     Indication: ARRHYTHMIA
     Route: 048
  3. CALCIUM CARBONATE AND CHOLECALCIFEROL [Concomitant]
     Indication: HYPOCALCAEMIA
     Route: 048
  4. FERROUS SULFATE [Concomitant]
     Indication: ANAEMIA
     Route: 048

REACTIONS (1)
  - EPILEPSY [None]
